FAERS Safety Report 8841252 (Version 3)
Quarter: 2012Q4

REPORT INFORMATION
  Report Type: 
  Country: CA (occurrence: CA)
  Receive Date: 20121015
  Receipt Date: 20121224
  Transmission Date: 20130627
  Serious: Yes (Hospitalization, Other)
  Sender: FDA-Public Use
  Company Number: CA-JNJFOC-20120214571

PATIENT
  Sex: Male

DRUGS (8)
  1. ZYTIGA [Suspect]
     Indication: PROSTATE CANCER METASTATIC
     Dosage: treated for a month and a half
     Route: 048
  2. CARBIDOPA LEVODOPA [Concomitant]
     Dosage: 100/25 mg
     Route: 065
  3. CITALOPRAM [Concomitant]
     Route: 048
  4. UNKNOWN MEDICATION [Concomitant]
     Route: 065
  5. METOPROLOL [Concomitant]
     Route: 065
  6. OXAZEPAM [Concomitant]
     Dosage: dose interval: QTP
     Route: 048
  7. OXYCODONE [Concomitant]
     Route: 048
  8. PREDNISON [Concomitant]
     Route: 048

REACTIONS (6)
  - Cerebrovascular accident [Unknown]
  - Parkinson^s disease [Unknown]
  - Balance disorder [Recovered/Resolved]
  - Infection [Unknown]
  - Night sweats [Unknown]
  - Pain in jaw [Unknown]
